FAERS Safety Report 16227838 (Version 4)
Quarter: 2020Q2

REPORT INFORMATION
  Report Type: Spontaneous
  Country: US (occurrence: US)
  Receive Date: 20190423
  Receipt Date: 20200611
  Transmission Date: 20200713
  Serious: Yes (Other)
  Sender: FDA-Public Use
  Company Number: US-PFIZER INC-2019008607

PATIENT
  Age: 63 Year
  Sex: Female

DRUGS (1)
  1. XELJANZ [Suspect]
     Active Substance: TOFACITINIB CITRATE
     Dosage: 5 MG

REACTIONS (6)
  - Pneumonia [Unknown]
  - Bronchitis [Unknown]
  - Neck pain [Unknown]
  - Hypoacusis [Unknown]
  - Arthralgia [Unknown]
  - Spinal pain [Unknown]
